FAERS Safety Report 8247481 (Version 3)
Quarter: 2013Q4

REPORT INFORMATION
  Report Type: Spontaneous
  Country: US (occurrence: US)
  Receive Date: 20111116
  Receipt Date: 20131119
  Transmission Date: 20140711
  Serious: Yes (Other)
  Sender: FDA-Public Use
  Company Number: US-UCBSA-024031

PATIENT
  Age: 35 Year
  Sex: Female

DRUGS (6)
  1. CIMZIA [Suspect]
     Indication: CROHN^S DISEASE
     Route: 058
     Dates: start: 20100629
  2. CIMZIA [Suspect]
     Indication: CROHN^S DISEASE
     Dates: start: 20100323, end: 2010
  3. FLORAJEN 3 [Concomitant]
     Indication: PROBIOTIC THERAPY
     Dosage: 2-3 TABLET
  4. MULTIVITAMIN [Concomitant]
     Indication: VITAMIN SUPPLEMENTATION
     Dosage: 1 TABLET
  5. PREDNISONE [Concomitant]
     Indication: ANTIINFLAMMATORY THERAPY
  6. ZOLPIDEM [Concomitant]
     Indication: SEDATIVE THERAPY

REACTIONS (3)
  - Abortion spontaneous [Unknown]
  - Pregnancy [Unknown]
  - Inappropriate schedule of drug administration [Not Recovered/Not Resolved]
